FAERS Safety Report 5918458-5 (Version None)
Quarter: 2008Q4

REPORT INFORMATION
  Report Type: 
  Country: None (occurrence: None)
  Receive Date: 20081015
  Receipt Date: 20081006
  Transmission Date: 20090506
  Serious: Yes (Life-Threatening, Disabling, Other)
  Sender: FDA-Public Use
  Company Number: FR-SANOFI-SYNTHELABO-A01200811393

PATIENT
  Age: 80 Year
  Sex: Male

DRUGS (1)
  1. ELIGARD [Suspect]
     Indication: PROSTATE CANCER
     Dosage: 45 MG ONCER PER 6 MONTHS
     Route: 058
     Dates: start: 20080416, end: 20080416

REACTIONS (2)
  - DEPRESSION [None]
  - SUICIDAL IDEATION [None]
